FAERS Safety Report 5912750-6 (Version None)
Quarter: 2008Q4

REPORT INFORMATION
  Report Type: 
  Country: None (occurrence: None)
  Receive Date: 20081008
  Receipt Date: 20080925
  Transmission Date: 20090506
  Serious: Yes (Death)
  Sender: FDA-Public Use
  Company Number: JP-ABBOTT-08P-087-0464042-00

PATIENT
  Age: 88 Year
  Sex: Male
  Weight: 44 kg

DRUGS (11)
  1. LEUPROLIDE ACETATE [Suspect]
     Indication: PROSTATE CANCER STAGE III
     Route: 058
     Dates: start: 20061213, end: 20061213
  2. BICALUTAMIDE [Concomitant]
     Indication: BENIGN PROSTATIC HYPERPLASIA
     Route: 048
     Dates: start: 20061213, end: 20070306
  3. TAMSULOSIN HCL [Concomitant]
     Indication: BENIGN PROSTATIC HYPERPLASIA
     Route: 048
     Dates: end: 20070306
  4. ACETYLSALICYLIC ACID SRT [Concomitant]
     Indication: CEREBRAL INFARCTION
     Route: 048
     Dates: end: 20070306
  5. FUROSEMIDE SODIUM [Concomitant]
     Indication: CARDIAC FAILURE
     Route: 048
     Dates: end: 20070306
  6. SPIRONOLACTONE [Concomitant]
     Indication: CARDIAC FAILURE
     Route: 048
     Dates: end: 20070306
  7. BENZBROMARONE [Concomitant]
     Indication: HYPERURICAEMIA
     Route: 048
     Dates: end: 20070306
  8. DENOPAMINE [Concomitant]
     Indication: CARDIAC FAILURE
     Route: 048
     Dates: end: 20070306
  9. NICORANDIL [Concomitant]
     Indication: CARDIAC FAILURE
     Route: 048
     Dates: end: 20070306
  10. MAGNESIUM OXIDE [Concomitant]
     Indication: CONSTIPATION
     Route: 048
     Dates: end: 20070306
  11. ISOSORBIDE DINITRATE [Concomitant]
     Indication: CARDIAC FAILURE
     Route: 062
     Dates: end: 20070306

REACTIONS (2)
  - CARDIAC FAILURE [None]
  - PNEUMONIA [None]
